FAERS Safety Report 10018990 (Version 2)
Quarter: 2014Q2

REPORT INFORMATION
  Report Type: Report from Study
  Country: JP (occurrence: JP)
  Receive Date: 20140318
  Receipt Date: 20140502
  Transmission Date: 20141212
  Serious: Yes (Hospitalization)
  Sender: FDA-Public Use
  Company Number: JP-GLAXOSMITHKLINE-B0977189A

PATIENT
  Age: 40 Year
  Sex: Female
  Weight: 39 kg

DRUGS (1)
  1. VOTRIENT 200MG [Suspect]
     Indication: INFLAMMATORY MYOFIBROBLASTIC TUMOUR
     Dosage: 800MG PER DAY
     Route: 048
     Dates: start: 20130205, end: 20131003

REACTIONS (3)
  - Tumour necrosis [Recovering/Resolving]
  - Wound dehiscence [Recovering/Resolving]
  - Hypertension [Recovering/Resolving]
